FAERS Safety Report 13466634 (Version 2)
Quarter: 2017Q2

REPORT INFORMATION
  Report Type: Spontaneous
  Country: US (occurrence: US)
  Receive Date: 20170421
  Receipt Date: 20170517
  Transmission Date: 20170830
  Serious: Yes (Other)
  Sender: FDA-Public Use
  Company Number: US-009507513-1704USA008684

PATIENT
  Age: 26 Year
  Sex: Male

DRUGS (1)
  1. SYLATRON [Suspect]
     Active Substance: PEGINTERFERON ALFA-2B
     Indication: MALIGNANT MELANOMA STAGE III
     Dosage: 6 MICROGRAM PER KILOGRAM (686 UG), QW
     Route: 058
     Dates: start: 201304, end: 2013

REACTIONS (1)
  - Narcolepsy [Recovered/Resolved]

NARRATIVE: CASE EVENT DATE: 2013
